FAERS Safety Report 9390225 (Version 1)
Quarter: 2013Q3

REPORT INFORMATION
  Report Type: Spontaneous
  Country: US (occurrence: US)
  Receive Date: 20130708
  Receipt Date: 20130708
  Transmission Date: 20140515
  Serious: Yes (Other)
  Sender: FDA-Public Use
  Company Number: US-ELI_LILLY_AND_COMPANY-US201307000824

PATIENT
  Age: 62 Year
  Sex: Female
  Weight: 113.83 kg

DRUGS (2)
  1. INSULIN HUMAN [Suspect]
     Route: 058
  2. CORTISONE [Suspect]
     Dosage: UNK

REACTIONS (3)
  - Blood glucose increased [Recovered/Resolved]
  - Blood glucose increased [Not Recovered/Not Resolved]
  - Wrong technique in drug usage process [Unknown]
